FAERS Safety Report 10089899 (Version 1)
Quarter: 2014Q2

REPORT INFORMATION
  Report Type: Report from Study
  Country: US (occurrence: US)
  Receive Date: 20140421
  Receipt Date: 20140421
  Transmission Date: 20141212
  Serious: No
  Sender: FDA-Public Use
  Company Number: US-ABBVIE-13P-163-1099466-00

PATIENT
  Age: 11 Year
  Sex: Female

DRUGS (1)
  1. LUPRON DEPOT-PED [Suspect]
     Indication: PELVIC PAIN
     Dosage: MONTHLY
     Dates: start: 20120601

REACTIONS (1)
  - Muscle spasms [Recovered/Resolved]
